FAERS Safety Report 10642246 (Version 2)
Quarter: 2015Q4

REPORT INFORMATION
  Report Type: Report from Study
  Country: JP (occurrence: JP)
  Receive Date: 20141210
  Receipt Date: 20151109
  Transmission Date: 20160304
  Serious: Yes (Death, Other)
  Sender: FDA-Public Use
  Company Number: JP-ALEXION PHARMACEUTICALS INC.-A201404577

PATIENT
  Age: 41 Year
  Sex: Male
  Weight: 60 kg

DRUGS (8)
  1. CHLOR-TRIMETON [Concomitant]
     Active Substance: CHLORPHENIRAMINE MALEATE
     Indication: NAUSEA
     Dosage: 10 MG, QD
     Route: 042
     Dates: start: 20141118, end: 20141126
  2. MEROPENEMUM [Concomitant]
     Indication: PNEUMONIA
     Dosage: 1 G, QD
     Route: 042
     Dates: start: 20141118, end: 20141125
  3. SOLU-MEDROL [Concomitant]
     Active Substance: METHYLPREDNISOLONE SODIUM SUCCINATE
     Indication: GRAFT VERSUS HOST DISEASE
     Dosage: 1000 MG, QD
     Route: 042
     Dates: start: 20141118, end: 20141126
  4. DENOSINE                           /00090105/ [Concomitant]
     Indication: CYTOMEGALOVIRUS INFECTION
     Dosage: 320 MG, QD
     Route: 042
     Dates: start: 20141121, end: 20141126
  5. BACTRAMIN [Concomitant]
     Active Substance: SULFAMETHOXAZOLE\TRIMETHOPRIM
     Indication: PROPHYLAXIS
     Dosage: 1 DF, QD
     Route: 042
     Dates: start: 20141119, end: 20141126
  6. GASTER [Concomitant]
     Active Substance: FAMOTIDINE
     Indication: GASTRIC ULCER
     Dosage: 20 MG, QD
     Route: 042
     Dates: start: 20141118, end: 20141126
  7. SOLIRIS [Suspect]
     Active Substance: ECULIZUMAB
     Indication: HAEMOLYTIC URAEMIC SYNDROME
     Dosage: 900 MG, SINGLE
     Route: 042
     Dates: start: 20141122, end: 20141122
  8. AMBISOME [Concomitant]
     Active Substance: AMPHOTERICIN B
     Indication: PNEUMONIA
     Dosage: 160 MG, QD
     Route: 042
     Dates: start: 20141119, end: 20141125

REACTIONS (5)
  - Thrombotic microangiopathy [Fatal]
  - Pneumonia [Fatal]
  - Renal impairment [Fatal]
  - Condition aggravated [Fatal]
  - Sepsis [Fatal]

NARRATIVE: CASE EVENT DATE: 20141122
